FAERS Safety Report 10058149 (Version 1)
Quarter: 2014Q2

REPORT INFORMATION
  Report Type: Spontaneous
  Country: US (occurrence: US)
  Receive Date: 20140404
  Receipt Date: 20140404
  Transmission Date: 20141212
  Serious: No
  Sender: FDA-Public Use
  Company Number: US-PFIZER INC-2014095386

PATIENT
  Age: 57 Year
  Sex: Male
  Weight: 95.69 kg

DRUGS (2)
  1. CELEBREX [Suspect]
     Indication: MUSCULOSKELETAL DISCOMFORT
     Dosage: 200 MG, 2X/DAY
     Dates: start: 2013, end: 201403
  2. CELEBREX [Suspect]
     Indication: ARTHRITIS

REACTIONS (2)
  - Swelling face [Recovered/Resolved]
  - Eye swelling [Recovered/Resolved]
